FAERS Safety Report 8301838-0 (Version None)
Quarter: 2012Q2

REPORT INFORMATION
  Report Type: 
  Country: None (occurrence: None)
  Receive Date: 20120420
  Receipt Date: 20120417
  Transmission Date: 20120825
  Serious: Yes (Death, Hospitalization)
  Sender: FDA-Public Use
  Company Number: IE-B.I. PHARMACEUTICALS,INC./RIDGEFIELD-2011-UK-01227UK

PATIENT
  Sex: Male

DRUGS (5)
  1. BISOPROLOL FUMARATE [Concomitant]
     Indication: HYPERTENSION
     Dosage: 2.5 MG
  2. PRADAXA [Suspect]
     Indication: CEREBROVASCULAR ACCIDENT PROPHYLAXIS
     Dosage: 300 MG
     Dates: end: 20111017
  3. PRADAXA [Suspect]
     Indication: ATRIAL FIBRILLATION
  4. ROSUVASTATIN [Concomitant]
     Dosage: 10 MG
  5. MULTAC (DRONEDARONE) [Concomitant]
     Dosage: 800 MG

REACTIONS (3)
  - HEADACHE [None]
  - HAEMORRHAGE INTRACRANIAL [None]
  - VOMITING [None]
